FAERS Safety Report 9555198 (Version 1)
Quarter: 2013Q3

REPORT INFORMATION
  Report Type: Spontaneous
  Country: US (occurrence: None)
  Receive Date: 20130925
  Receipt Date: 20130925
  Transmission Date: 20140515
  Serious: Yes (Life-Threatening, Hospitalization)
  Sender: FDA-Public Use
  Company Number: None

PATIENT
  Age: 71 Year
  Sex: Female
  Weight: 61.24 kg

DRUGS (8)
  1. SMZ/TMP DS [Suspect]
     Indication: URINARY TRACT INFECTION
     Dosage: 20 PILLS 2 A DAY BY MOUTH
     Dates: start: 20111006, end: 20111015
  2. TROPROL XL [Concomitant]
  3. PROVASTATION [Concomitant]
  4. LOSARTAN [Concomitant]
  5. FISH OIL [Concomitant]
  6. CALCIUM [Concomitant]
  7. BABY ASPIRIN [Concomitant]
  8. METFARMIN [Concomitant]

REACTIONS (6)
  - Platelet count decreased [None]
  - Asthenia [None]
  - Periorbital contusion [None]
  - Haemorrhage [None]
  - Loss of consciousness [None]
  - Erythema [None]
